FAERS Safety Report 6103842-X (Version None)
Quarter: 2009Q1

REPORT INFORMATION
  Report Type: 
  Country: None (occurrence: None)
  Receive Date: 20090305
  Receipt Date: 20090225
  Transmission Date: 20090719
  Serious: Yes (Hospitalization)
  Sender: FDA-Public Use
  Company Number: US-ASTRAZENECA-2008UW07371

PATIENT
  Age: 39 Year
  Sex: Female
  Weight: 137.4 kg

DRUGS (5)
  1. SEROQUEL [Suspect]
     Indication: BIPOLAR DISORDER
     Dosage: 100-400MG
     Route: 048
     Dates: start: 20011228
  2. XENICAL [Concomitant]
     Dates: start: 20030101, end: 20080101
  3. ABILIFY [Concomitant]
     Dates: start: 20080301
  4. THORAZINE [Concomitant]
     Dates: start: 19880101, end: 19990101
  5. TRAZODONE HCL [Concomitant]
     Dosage: 50-150MG
     Dates: start: 20040331

REACTIONS (6)
  - BACK PAIN [None]
  - DIABETES MELLITUS [None]
  - HYSTERECTOMY [None]
  - OBESITY [None]
  - RHEUMATOID ARTHRITIS [None]
  - WEIGHT INCREASED [None]
